FAERS Safety Report 13266137 (Version 1)
Quarter: 2017Q1

REPORT INFORMATION
  Report Type: Spontaneous
  Country: US (occurrence: US)
  Receive Date: 20170223
  Receipt Date: 20170223
  Transmission Date: 20170428
  Serious: No
  Sender: FDA-Public Use
  Company Number: US-LUNDBECK-DKLU2025635

PATIENT
  Sex: Female

DRUGS (2)
  1. ONFI [Suspect]
     Active Substance: CLOBAZAM
     Indication: STATUS EPILEPTICUS
  2. ONFI [Suspect]
     Active Substance: CLOBAZAM
     Indication: ACQUIRED EPILEPTIC APHASIA
     Route: 048

REACTIONS (4)
  - Hunger [Unknown]
  - Agitation [Unknown]
  - Abnormal behaviour [Unknown]
  - Off label use [Unknown]
